FAERS Safety Report 6903307-9 (Version None)
Quarter: 2010Q3

REPORT INFORMATION
  Report Type: 
  Country: None (occurrence: None)
  Receive Date: 20100803
  Receipt Date: 20080918
  Transmission Date: 20110219
  Serious: Yes (Other)
  Sender: FDA-Public Use
  Company Number: US-PFIZER INC-2008079866

PATIENT
  Sex: Female
  Weight: 71 kg

DRUGS (3)
  1. LYRICA [Suspect]
     Indication: MYOFASCIAL PAIN SYNDROME
     Dates: start: 20080801
  2. LYRICA [Suspect]
     Indication: FIBROMYALGIA
  3. ALL OTHER THERAPEUTIC PRODUCTS [Concomitant]

REACTIONS (5)
  - EAR CONGESTION [None]
  - HEADACHE [None]
  - SEASONAL ALLERGY [None]
  - SECRETION DISCHARGE [None]
  - SINUSITIS [None]
